FAERS Safety Report 12619795 (Version 4)
Quarter: 2018Q1

REPORT INFORMATION
  Report Type: Spontaneous
  Country: US (occurrence: US)
  Receive Date: 20160803
  Receipt Date: 20180226
  Transmission Date: 20180508
  Serious: Yes (Death, Hospitalization, Disabling)
  Sender: FDA-Public Use
  Company Number: US-ENDO PHARMACEUTICALS INC.-2016-004884

PATIENT
  Age: 69 Year
  Sex: Male
  Weight: 86.17 kg

DRUGS (3)
  1. TESTIM [Suspect]
     Active Substance: TESTOSTERONE
     Indication: ANDROGEN REPLACEMENT THERAPY
     Dosage: 50 MG, DAILY
     Route: 062
     Dates: start: 20080201, end: 201406
  2. SYNTHROID [Concomitant]
     Active Substance: LEVOTHYROXINE SODIUM
     Indication: HYPOTHYROIDISM
     Dosage: UNK UNKNOWN, UNKNOWN
     Route: 065
     Dates: start: 1990, end: 201409
  3. PREDNISONE TABLETS [Concomitant]
     Active Substance: PREDNISONE
     Indication: INFLAMMATION
     Dosage: UNK UNKNOWN, UNKNOWN
     Route: 065
     Dates: start: 1990, end: 2014

REACTIONS (5)
  - Peripheral ischaemia [Not Recovered/Not Resolved]
  - Cardiac arrest [Fatal]
  - Small cell lung cancer metastatic [Fatal]
  - Febrile neutropenia [Unknown]
  - Embolism arterial [Not Recovered/Not Resolved]

NARRATIVE: CASE EVENT DATE: 20140608
